FAERS Safety Report 13257608 (Version 1)
Quarter: 2017Q1

REPORT INFORMATION
  Report Type: Spontaneous
  Country: JP (occurrence: JP)
  Receive Date: 20170221
  Receipt Date: 20170221
  Transmission Date: 20170428
  Serious: Yes (Other)
  Sender: FDA-Public Use
  Company Number: PHJP2017JP005548

PATIENT
  Age: 67 Year
  Sex: Male

DRUGS (3)
  1. PREDONINE [Concomitant]
     Active Substance: PREDNISOLONE
     Indication: RENAL TRANSPLANT
     Dosage: 10 MG, UNK
     Route: 048
     Dates: start: 1984
  2. AZATHIOPRINE. [Concomitant]
     Active Substance: AZATHIOPRINE
     Indication: RENAL TRANSPLANT
     Dosage: UNK
     Route: 048
     Dates: start: 1984
  3. NEORAL [Suspect]
     Active Substance: CYCLOSPORINE
     Indication: RENAL TRANSPLANT
     Dosage: 200 MG, UNK
     Route: 048
     Dates: start: 2000

REACTIONS (4)
  - Embolism [Unknown]
  - Concomitant disease aggravated [Not Recovered/Not Resolved]
  - Cerebral haemorrhage [Unknown]
  - Cerebrovascular arteriovenous malformation [Not Recovered/Not Resolved]

NARRATIVE: CASE EVENT DATE: 20170202
